APPROVED DRUG PRODUCT: RABEPRAZOLE SODIUM
Active Ingredient: RABEPRAZOLE SODIUM
Strength: 20MG
Dosage Form/Route: TABLET, DELAYED RELEASE;ORAL
Application: A204237 | Product #001 | TE Code: AB
Applicant: RUBICON RESEARCH LTD
Approved: Nov 18, 2015 | RLD: No | RS: No | Type: RX